FAERS Safety Report 22313799 (Version 1)
Quarter: 2023Q2

REPORT INFORMATION
  Report Type: Spontaneous
  Country: US (occurrence: US)
  Receive Date: 20230512
  Receipt Date: 20230512
  Transmission Date: 20230722
  Serious: No
  Sender: FDA-Public Use
  Company Number: US-drreddys-SPO/USA/23/0163974

PATIENT
  Age: 18 Year
  Sex: Female

DRUGS (2)
  1. ZENATANE [Suspect]
     Active Substance: ISOTRETINOIN
     Indication: Acne
     Dosage: RMA ISSUE DATE: 18/OCTOBER/2022 04:33:40 PM, 22/NOVEMBER/2022 04:05:04 PM
  2. ZENATANE [Suspect]
     Active Substance: ISOTRETINOIN
     Dosage: RMA ISSUE DATE: 21/DECEMBER/2022 02:19:35 PM, 27/JANUARY/2023 11:48:04 AM, 23/FEBRUARY/2023 04:44:06

REACTIONS (1)
  - Dry skin [Unknown]
